FAERS Safety Report 5123711-1 (Version None)
Quarter: 2006Q4

REPORT INFORMATION
  Report Type: 
  Country: None (occurrence: None)
  Receive Date: 20061010
  Receipt Date: 20060620
  Transmission Date: 20070319
  Serious: Yes (Hospitalization)
  Sender: FDA-Public Use
  Company Number: PHBS2006BR09439

PATIENT
  Sex: Female

DRUGS (1)
  1. PARLODEL [Suspect]
     Indication: BLOOD PROLACTIN INCREASED
     Dosage: UNK, UNK
     Route: 048
     Dates: start: 20060619, end: 20060620

REACTIONS (12)
  - BACK PAIN [None]
  - CARDIOMEGALY [None]
  - DIZZINESS [None]
  - HYPOAESTHESIA [None]
  - HYPOTENSION [None]
  - MALAISE [None]
  - MASS [None]
  - NAUSEA [None]
  - PALLOR [None]
  - PNEUMONIA [None]
  - VISUAL DISTURBANCE [None]
  - YAWNING [None]
